FAERS Safety Report 11480816 (Version 1)
Quarter: 2015Q3

REPORT INFORMATION
  Report Type: Report from Study
  Country: NL (occurrence: NL)
  Receive Date: 20150909
  Receipt Date: 20150909
  Transmission Date: 20151125
  Serious: Yes (Hospitalization)
  Sender: FDA-Public Use
  Company Number: NL-ASTRAZENECA-2015SE84571

PATIENT
  Age: 24888 Day
  Sex: Male

DRUGS (2)
  1. RADIOTHERAPY [Suspect]
     Active Substance: RADIATION THERAPY
     Indication: OROPHARYNGEAL SQUAMOUS CELL CARCINOMA
     Dosage: 2GY 3 FRACTIONS
     Route: 065
     Dates: start: 20150720
  2. AZD2281 [Suspect]
     Active Substance: OLAPARIB
     Indication: OROPHARYNGEAL SQUAMOUS CELL CARCINOMA
     Route: 048
     Dates: start: 20150713

REACTIONS (1)
  - Dysphagia [Unknown]

NARRATIVE: CASE EVENT DATE: 20150821
